FAERS Safety Report 5107650-8 (Version None)
Quarter: 2006Q3

REPORT INFORMATION
  Report Type: 
  Country: None (occurrence: None)
  Receive Date: 20060919
  Receipt Date: 20060901
  Transmission Date: 20061208
  Serious: Yes (Life-Threatening, Hospitalization, Other)
  Sender: FDA-Public Use
  Company Number: US-JNJFOC-20060901203

PATIENT
  Sex: Male

DRUGS (13)
  1. REOPRO [Suspect]
     Indication: PERIPHERAL ISCHAEMIA
  2. ASPIRIN [Concomitant]
  3. ASPIRIN [Concomitant]
  4. IMMUNE GLOBULIN INTRAVENOUS (HUMAN) [Concomitant]
     Dosage: 2 G/KG
     Route: 042
  5. HEPARIN [Concomitant]
     Route: 042
  6. ANTI THR0MBIN III [Concomitant]
  7. NITROGLYN 2% OINTMENT [Concomitant]
  8. METHYLPREDNISOLONE [Concomitant]
  9. DIPYRIDAMOLE [Concomitant]
  10. DIGOXIN [Concomitant]
  11. CLONIDINE [Concomitant]
  12. RANITIDINE [Concomitant]
  13. METOCLOPRAMIDE [Concomitant]

REACTIONS (6)
  - AMPUTATION [None]
  - ENTEROBACTER INFECTION [None]
  - FOOD INTOLERANCE [None]
  - GANGRENE [None]
  - HYPERTENSION [None]
  - VENTRICULAR TACHYCARDIA [None]
